FAERS Safety Report 8082884 (Version 3)
Quarter: 2013Q3

REPORT INFORMATION
  Report Type: Spontaneous
  Country: DE (occurrence: DE)
  Receive Date: 20110809
  Receipt Date: 20130820
  Transmission Date: 20140515
  Serious: Yes (Life-Threatening, Other)
  Sender: FDA-Public Use
  Company Number: DE-PFIZER INC-2011160810

PATIENT
  Age: 54 Year
  Sex: Female
  Weight: 51 kg

DRUGS (1)
  1. SOBELIN [Suspect]
     Indication: TOOTHACHE
     Dosage: UNK
     Dates: start: 200701

REACTIONS (5)
  - Pseudomembranous colitis [Recovered/Resolved]
  - Tenosynovitis [Unknown]
  - Nausea [Unknown]
  - Weight decreased [Unknown]
  - Circadian rhythm sleep disorder [Unknown]
